FAERS Safety Report 21370584 (Version 1)
Quarter: 2022Q3

REPORT INFORMATION
  Report Type: Spontaneous
  Country: US (occurrence: US)
  Receive Date: 20220923
  Receipt Date: 20220923
  Transmission Date: 20221027
  Serious: Yes (Hospitalization, Other)
  Sender: FDA-Public Use
  Company Number: US-Blueprint Medicines Corporation-SP-US-2022-002857

PATIENT
  Sex: Female

DRUGS (1)
  1. AYVAKIT [Suspect]
     Active Substance: AVAPRITINIB
     Indication: Systemic mastocytosis
     Route: 048
     Dates: start: 20220730

REACTIONS (6)
  - Arthropod sting [Unknown]
  - Unresponsive to stimuli [Unknown]
  - Taste disorder [Unknown]
  - Decreased appetite [Unknown]
  - Erythema [Recovering/Resolving]
  - Rash [Unknown]
